FAERS Safety Report 6800620-0 (Version None)
Quarter: 2010Q2

REPORT INFORMATION
  Report Type: 
  Country: None (occurrence: None)
  Receive Date: 20100629
  Receipt Date: 20100621
  Transmission Date: 20101027
  Serious: Yes (Hospitalization)
  Sender: FDA-Public Use
  Company Number: IE-JNJFOC-20100509482

PATIENT
  Sex: Female
  Weight: 93 kg

DRUGS (8)
  1. STELARA [Suspect]
     Route: 058
  2. STELARA [Suspect]
     Indication: DERMATITIS ATOPIC
     Route: 058
  3. THEOPHYLLINE [Concomitant]
     Indication: ASTHMA
     Route: 048
  4. TIOTROPIUM [Concomitant]
     Indication: ASTHMA
     Route: 065
  5. SYMBICORT [Concomitant]
     Indication: ASTHMA
     Dosage: 400/12 INHALATION POWDER
     Route: 055
  6. ATROVENT [Concomitant]
     Indication: ASTHMA
     Route: 065
  7. SINGULAIR [Concomitant]
     Indication: ASTHMA
     Route: 065
  8. CALCICHEW [Concomitant]
     Indication: OSTEOPOROSIS
     Route: 065

REACTIONS (2)
  - ASTHMA [None]
  - OFF LABEL USE [None]
